FAERS Safety Report 5516884-X (Version None)
Quarter: 2007Q4

REPORT INFORMATION
  Report Type: 
  Country: None (occurrence: None)
  Receive Date: 20071114
  Receipt Date: 20071106
  Transmission Date: 20080405
  Serious: Yes (Other)
  Sender: FDA-Public Use
  Company Number: ES-AMGEN-US251942

PATIENT
  Age: 59 Year
  Sex: Male

DRUGS (3)
  1. ENBREL [Suspect]
     Indication: RHEUMATOID ARTHRITIS
     Dosage: LYOPHILIZED 25 MG 2 PER WEEK
     Route: 058
     Dates: start: 20070101, end: 20070416
  2. ENBREL [Suspect]
     Dosage: PREFILLED SYRINGE 50 MG PER WEEK
     Route: 058
     Dates: start: 20070423, end: 20070618
  3. ENBREL [Suspect]
     Dosage: LYOPHILIZED 25 MG 2 PER WEEK
     Route: 058

REACTIONS (1)
  - DRUG EFFECT DECREASED [None]
